FAERS Safety Report 14966677 (Version 2)
Quarter: 2018Q3

REPORT INFORMATION
  Report Type: Spontaneous
  Country: FR (occurrence: FR)
  Receive Date: 20180604
  Receipt Date: 20180820
  Transmission Date: 20181010
  Serious: Yes (Hospitalization)
  Sender: FDA-Public Use
  Company Number: FR-TEVA-2018-FR-900403

PATIENT
  Age: 31 Year
  Sex: Female

DRUGS (2)
  1. TRILEPTAL 150 MG, COMPRIM? PELLICUL? [Concomitant]
     Indication: EPILEPSY
     Route: 048
     Dates: start: 20130701
  2. AMOXICILLIN. [Suspect]
     Active Substance: AMOXICILLIN
     Indication: INFECTION
     Route: 065
     Dates: start: 20180306, end: 20180313

REACTIONS (1)
  - Neutropenia [Recovered/Resolved]

NARRATIVE: CASE EVENT DATE: 20180312
